FAERS Safety Report 6223992-7 (Version None)
Quarter: 2009Q2

REPORT INFORMATION
  Report Type: 
  Country: None (occurrence: None)
  Receive Date: 20090612
  Receipt Date: 20090305
  Transmission Date: 20091009
  Serious: Yes (Other)
  Sender: FDA-Public Use
  Company Number: US-ABBOTT-09P-163-0561105-00

PATIENT
  Sex: Female
  Weight: 56.75 kg

DRUGS (2)
  1. HUMIRA [Suspect]
     Indication: PSORIASIS
     Route: 058
     Dates: start: 20081215
  2. NUVARING [Concomitant]
     Indication: CONTRACEPTION
     Route: 067
     Dates: start: 20090201

REACTIONS (1)
  - PAPILLOMA VIRAL INFECTION [None]
